FAERS Safety Report 15851348 (Version 4)
Quarter: 2023Q1

REPORT INFORMATION
  Report Type: Spontaneous
  Country: US (occurrence: None)
  Receive Date: 20190122
  Receipt Date: 20230220
  Transmission Date: 20230418
  Serious: Yes (Death, Disabling, Other)
  Sender: FDA-Public Use
  Company Number: 2019SE09065

PATIENT
  Age: 797 Month
  Sex: Male
  Weight: 54.4 kg

DRUGS (53)
  1. NEXIUM [Suspect]
     Active Substance: ESOMEPRAZOLE MAGNESIUM
     Indication: Gastrooesophageal reflux disease
     Route: 048
     Dates: start: 20110407, end: 20151224
  2. NEXIUM [Suspect]
     Active Substance: ESOMEPRAZOLE MAGNESIUM
     Indication: Gastrooesophageal reflux disease
     Route: 048
     Dates: start: 20110407, end: 20111220
  3. NEXIUM [Suspect]
     Active Substance: ESOMEPRAZOLE MAGNESIUM
     Indication: Gastrooesophageal reflux disease
     Route: 048
     Dates: start: 20110407, end: 20150218
  4. NEXIUM [Suspect]
     Active Substance: ESOMEPRAZOLE MAGNESIUM
     Indication: Gastrooesophageal reflux disease
     Route: 048
     Dates: start: 20151127, end: 20151226
  5. NEXIUM [Suspect]
     Active Substance: ESOMEPRAZOLE MAGNESIUM
     Indication: Gastrooesophageal reflux disease
     Route: 048
     Dates: start: 20090403, end: 20100522
  6. NEXIUM [Suspect]
     Active Substance: ESOMEPRAZOLE MAGNESIUM
     Indication: Gastrooesophageal reflux disease
     Dosage: GENERIC
     Route: 065
     Dates: start: 20150329, end: 20150924
  7. NEXIUM [Suspect]
     Active Substance: ESOMEPRAZOLE MAGNESIUM
     Indication: Gastrooesophageal reflux disease
     Dosage: 40.0MG UNKNOWN
     Route: 048
     Dates: start: 20110407
  8. NEXIUM [Suspect]
     Active Substance: ESOMEPRAZOLE MAGNESIUM
     Indication: Gastrooesophageal reflux disease
     Dosage: GENERIC40.0MG UNKNOWN
     Route: 065
     Dates: start: 20150329
  9. PRILOSEC OTC [Suspect]
     Active Substance: OMEPRAZOLE MAGNESIUM
     Route: 048
  10. PREVACID 24 HR [Suspect]
     Active Substance: LANSOPRAZOLE
     Route: 065
  11. PANTOPRAZOLE [Suspect]
     Active Substance: PANTOPRAZOLE
     Indication: Neoplasm malignant
     Route: 065
     Dates: start: 20170904, end: 20171204
  12. PANTOPRAZOLE [Suspect]
     Active Substance: PANTOPRAZOLE
     Indication: Neoplasm malignant
     Route: 065
     Dates: start: 20170725, end: 20171204
  13. PANTOPRAZOLE [Suspect]
     Active Substance: PANTOPRAZOLE
     Indication: Neoplasm malignant
     Route: 065
     Dates: start: 20170725
  14. HYDROCHLOROTHIAZIDE\VALSARTAN [Concomitant]
     Active Substance: HYDROCHLOROTHIAZIDE\VALSARTAN
     Indication: Hypertension
     Dates: start: 20140407, end: 20170709
  15. SUCRALFATE [Concomitant]
     Active Substance: SUCRALFATE
  16. ZOLPIDEM [Concomitant]
     Active Substance: ZOLPIDEM TARTRATE
  17. EFFIENT [Concomitant]
     Active Substance: PRASUGREL HYDROCHLORIDE
  18. AMLODIPINE [Concomitant]
     Active Substance: AMLODIPINE BESYLATE
  19. ASPIRIN [Concomitant]
     Active Substance: ASPIRIN
     Indication: Dysaesthesia
  20. ASPIRIN [Concomitant]
     Active Substance: ASPIRIN
     Indication: Anticoagulant therapy
  21. ASPIRIN [Concomitant]
     Active Substance: ASPIRIN
     Indication: Dysaesthesia
  22. ASPIRIN [Concomitant]
     Active Substance: ASPIRIN
     Indication: Anticoagulant therapy
  23. CRESTOR [Concomitant]
     Active Substance: ROSUVASTATIN CALCIUM
  24. RANEXA [Concomitant]
     Active Substance: RANOLAZINE
  25. CEPHALEXIN [Concomitant]
     Active Substance: CEPHALEXIN
     Dates: start: 20170109, end: 20170208
  26. CELEBREX [Concomitant]
     Active Substance: CELECOXIB
     Dates: start: 20141014
  27. CIPROFLOXACIN [Concomitant]
     Active Substance: CIPROFLOXACIN
     Dates: start: 20161211, end: 20161220
  28. DIOVAN [Concomitant]
     Active Substance: VALSARTAN
     Indication: Hypertension
     Dates: start: 20070815, end: 20111219
  29. MELOXICAM [Concomitant]
     Active Substance: MELOXICAM
     Dates: start: 20090501, end: 20110216
  30. PRAVACHOL [Concomitant]
     Active Substance: PRAVASTATIN SODIUM
     Indication: Hyperlipidaemia
     Dates: start: 20110405, end: 20110602
  31. CARVEDILOL [Concomitant]
     Active Substance: CARVEDILOL
  32. ECONAZOLE [Concomitant]
     Active Substance: ECONAZOLE
  33. POTASSIUM CHLORIDE [Concomitant]
     Active Substance: POTASSIUM CHLORIDE
  34. LEVITRA [Concomitant]
     Active Substance: VARDENAFIL HYDROCHLORIDE
  35. NITROLINGUAL [Concomitant]
     Active Substance: NITROGLYCERIN
  36. HYDROMET [Concomitant]
     Active Substance: HOMATROPINE METHYLBROMIDE\HYDROCODONE BITARTRATE
  37. VANCOMYCIN [Concomitant]
     Active Substance: VANCOMYCIN
  38. LEUCOVORIN [Concomitant]
     Active Substance: LEUCOVORIN
  39. MIDAZOLAM [Concomitant]
     Active Substance: MIDAZOLAM
  40. OXALIPLATIN [Concomitant]
     Active Substance: OXALIPLATIN
  41. FOSAPREPITANT [Concomitant]
     Active Substance: FOSAPREPITANT
  42. DOCETAXEL [Concomitant]
     Active Substance: DOCETAXEL
  43. DEXAMETHASONE [Concomitant]
     Active Substance: DEXAMETHASONE
  44. FLUOROURACIL [Concomitant]
     Active Substance: FLUOROURACIL
  45. ONDANSETRON [Concomitant]
     Active Substance: ONDANSETRON
  46. PEGFILGRASTIM [Concomitant]
     Active Substance: PEGFILGRASTIM
  47. CEFAZOLIN [Concomitant]
     Active Substance: CEFAZOLIN
  48. HYDROCODONE [Concomitant]
     Active Substance: HYDROCODONE
  49. IBUPROFEN [Concomitant]
     Active Substance: IBUPROFEN
  50. SIMETHICONE (DIMETHICONE) [Concomitant]
     Active Substance: DIMETHICONE
  51. LOVENOX [Concomitant]
     Active Substance: ENOXAPARIN SODIUM
  52. ZOCOR [Concomitant]
     Active Substance: SIMVASTATIN
  53. OMNICEF [Concomitant]
     Active Substance: CEFDINIR

REACTIONS (2)
  - Gastric cancer stage IV [Fatal]
  - Adenocarcinoma gastric [Unknown]

NARRATIVE: CASE EVENT DATE: 20170701
